FAERS Safety Report 4619679-4 (Version None)
Quarter: 2005Q1

REPORT INFORMATION
  Report Type: 
  Country: None (occurrence: None)
  Receive Date: 20050324
  Receipt Date: 20041130
  Transmission Date: 20050727
  Serious: Yes (Death)
  Sender: FDA-Public Use
  Company Number: 2004103897

PATIENT
  Age: 85 Year
  Sex: Female

DRUGS (9)
  1. ZELDOX [Suspect]
     Indication: HALLUCINATION
     Dosage: 40 MG (20 MG, 2 IN 1 D), ORAL
     Route: 048
     Dates: start: 20040803, end: 20040806
  2. QUETIAPINE FUMARATE [Suspect]
     Indication: HALLUCINATION
     Dosage: 50 MG (50 MG, 1 IN 1 D), ORAL
     Route: 048
     Dates: start: 20040813, end: 20040819
  3. ENALAPRIL MALEATE [Concomitant]
  4. ISOSORBIDE MONONITRATE [Concomitant]
  5. CALCIUM CARBONATE                       (CALCIUM CARBONATE) [Concomitant]
  6. TRIOBE                  (CYANOCOBALAMIN, FOLIC ACID, PYRIDOXINE) [Concomitant]
  7. ALENDRONATE SODIUM [Concomitant]
  8. DIGITOXIN TAB [Concomitant]
  9. WARFARIN SODIUM [Concomitant]

REACTIONS (2)
  - MYOCARDIAL INFARCTION [None]
  - SUDDEN DEATH [None]
